FAERS Safety Report 26169600 (Version 1)
Quarter: 2025Q4

REPORT INFORMATION
  Report Type: Spontaneous
  Country: US (occurrence: None)
  Receive Date: 20251216
  Receipt Date: 20251216
  Transmission Date: 20260117
  Serious: Yes (Hospitalization)
  Sender: FDA-CTU
  Company Number: None

PATIENT
  Age: 41 Year
  Sex: Female
  Weight: 72 kg

DRUGS (3)
  1. ZEPBOUND [Suspect]
     Active Substance: TIRZEPATIDE
     Indication: Weight decreased
     Dosage: OTHER QUANTITY : 1 INJECTION(S);?OTHER FREQUENCY : ONCE A WEEK;
     Route: 058
     Dates: start: 20240901, end: 20250120
  2. ALBUTEROL [Concomitant]
     Active Substance: ALBUTEROL
  3. MAGNESIUM [Concomitant]
     Active Substance: MAGNESIUM

REACTIONS (4)
  - Abdominal discomfort [None]
  - Loss of personal independence in daily activities [None]
  - General physical health deterioration [None]
  - Appendicectomy [None]

NARRATIVE: CASE EVENT DATE: 20250124
